FAERS Safety Report 6376996-8 (Version None)
Quarter: 2009Q3

REPORT INFORMATION
  Report Type: 
  Country: None (occurrence: None)
  Receive Date: 20090925
  Receipt Date: 20090916
  Transmission Date: 20100115
  Serious: Yes (Other)
  Sender: FDA-Public Use
  Company Number: US-ASTRAZENECA-2009UW18692

PATIENT
  Age: 76 Year
  Sex: Female
  Weight: 81.6 kg

DRUGS (7)
  1. CRESTOR [Suspect]
     Route: 048
     Dates: start: 20090401, end: 20090501
  2. METHOTREXATE [Concomitant]
     Dosage: WEEK
  3. TOPROL-XL [Concomitant]
     Route: 048
  4. DIOVAN [Concomitant]
  5. CLONIDINE [Concomitant]
  6. LUNESTA [Concomitant]
     Dosage: PRN
  7. SKELAXIN [Concomitant]
     Dosage: 800 MG PRN

REACTIONS (5)
  - ARTHRALGIA [None]
  - GAIT DISTURBANCE [None]
  - MOBILITY DECREASED [None]
  - MUSCULAR WEAKNESS [None]
  - PAIN IN EXTREMITY [None]
